FAERS Safety Report 9172126 (Version 1)
Quarter: 2013Q1

REPORT INFORMATION
  Report Type: Spontaneous
  Country: US (occurrence: US)
  Receive Date: 20130319
  Receipt Date: 20130319
  Transmission Date: 20140127
  Serious: No
  Sender: FDA-Public Use
  Company Number: US-009507513-1303USA005796

PATIENT
  Age: 88 Year
  Sex: Male

DRUGS (1)
  1. DULERA [Suspect]
     Dosage: 1 STANDARD DOSE OF 13
     Route: 055

REACTIONS (3)
  - Fall [Recovering/Resolving]
  - Contusion [Recovering/Resolving]
  - Product quality issue [Unknown]
